FAERS Safety Report 17334832 (Version 1)
Quarter: 2020Q1

REPORT INFORMATION
  Report Type: Spontaneous
  Country: CH (occurrence: CH)
  Receive Date: 20200128
  Receipt Date: 20200128
  Transmission Date: 20200409
  Serious: Yes (Other)
  Sender: FDA-Public Use
  Company Number: CH-009507513-2001CHE008309

PATIENT
  Age: 50 Year
  Sex: Female

DRUGS (9)
  1. APIXABAN [Concomitant]
     Active Substance: APIXABAN
  2. MOVICOL [Concomitant]
     Active Substance: POLYETHYLENE GLYCOL 3350\POTASSIUM CHLORIDE\SODIUM BICARBONATE\SODIUM CHLORIDE
     Dosage: 500 MG MAX. 4 TIMES PER DAY AS NEEDED
  3. NOVALGIN (DIPYRONE) [Suspect]
     Active Substance: DIPYRONE
     Dosage: UNK
     Dates: start: 2018, end: 20191123
  4. BUPRENORPHINE. [Concomitant]
     Active Substance: BUPRENORPHINE
  5. ACETAMINOPHEN. [Suspect]
     Active Substance: ACETAMINOPHEN
     Dosage: MAX 4X/D ; AS NECESSARY
     Route: 048
  6. FOLIC ACID. [Concomitant]
     Active Substance: FOLIC ACID
  7. PEMBROLIZUMAB. [Suspect]
     Active Substance: PEMBROLIZUMAB
     Dates: start: 20190726, end: 201909
  8. LEVOTHYROXINE SODIUM. [Concomitant]
     Active Substance: LEVOTHYROXINE SODIUM
  9. PURSANA [Concomitant]
     Active Substance: FIG FRUIT OIL\SORBITOL

REACTIONS (1)
  - Agranulocytosis [Recovered/Resolved]

NARRATIVE: CASE EVENT DATE: 20191101
